FAERS Safety Report 7937057-7 (Version None)
Quarter: 2011Q4

REPORT INFORMATION
  Report Type: 
  Country: None (occurrence: None)
  Receive Date: 20111123
  Receipt Date: 20111110
  Transmission Date: 20120403
  Serious: Yes (Other)
  Sender: FDA-Public Use
  Company Number: FR-ACTELION-A-CH2011-57013

PATIENT
  Age: 40 Year
  Sex: Female

DRUGS (1)
  1. ZAVESCA [Suspect]
     Indication: GAUCHER'S DISEASE
     Dosage: 300 MG, QD
     Route: 048

REACTIONS (2)
  - ARTHRALGIA [None]
  - OSTEONECROSIS [None]
